FAERS Safety Report 8775322 (Version 2)
Quarter: 2012Q4

REPORT INFORMATION
  Report Type: 
  Country: GB (occurrence: GB)
  Receive Date: 20120909
  Receipt Date: 20120921
  Transmission Date: 20130627
  Serious: Yes (Other)
  Sender: FDA-Public Use
  Company Number: GB-009507513-1207GBR006821

PATIENT
  Age: 33 Year
  Sex: Female
  Weight: 56 kg

DRUGS (1)
  1. NEXPLANON [Suspect]
     Indication: CONTRACEPTION
     Dosage: 68mg, subdermally
     Route: 059
     Dates: start: 20120627, end: 20120806

REACTIONS (6)
  - Device expulsion [Recovered/Resolved with Sequelae]
  - Implant site erythema [Recovered/Resolved with Sequelae]
  - Implant site infection [Recovered/Resolved with Sequelae]
  - Implant site pain [Recovered/Resolved with Sequelae]
  - Implant site pustules [Recovered/Resolved with Sequelae]
  - Implant site swelling [Recovered/Resolved with Sequelae]
